FAERS Safety Report 16334986 (Version 1)
Quarter: 2019Q2

REPORT INFORMATION
  Report Type: Spontaneous
  Country: US (occurrence: US)
  Receive Date: 20190520
  Receipt Date: 20190520
  Transmission Date: 20190711
  Serious: Yes (Hospitalization)
  Sender: FDA-Public Use
  Company Number: US-TWI PHARMACEUTICAL, INC-2019SCTW000011

PATIENT

DRUGS (1)
  1. MEGESTROL ACETATE. [Suspect]
     Active Substance: MEGESTROL ACETATE
     Indication: FAILURE TO THRIVE
     Dosage: UNK
     Route: 065

REACTIONS (2)
  - Intracranial pressure increased [Recovered/Resolved]
  - Adrenal insufficiency [Recovered/Resolved]
